FAERS Safety Report 8086596-X (Version None)
Quarter: 2012Q1

REPORT INFORMATION
  Report Type: 
  Country: None (occurrence: None)
  Receive Date: 20120128
  Receipt Date: 20110523
  Transmission Date: 20120608
  Serious: Yes (Other)
  Sender: FDA-Public Use
  Company Number: US-ABBOTT-11P-163-0725558-00

PATIENT
  Sex: Female
  Weight: 53.118 kg

DRUGS (10)
  1. FOLIC ACID [Concomitant]
     Indication: PRODUCT USED FOR UNKNOWN INDICATION
  2. STARLIX GENERIC [Concomitant]
     Indication: PRODUCT USED FOR UNKNOWN INDICATION
  3. ASPIRIN [Concomitant]
     Indication: PRODUCT USED FOR UNKNOWN INDICATION
  4. VITAMIN B-12 [Concomitant]
     Indication: PRODUCT USED FOR UNKNOWN INDICATION
  5. WELCHOL [Concomitant]
     Indication: BLOOD CHOLESTEROL INCREASED
  6. INSULIN [Concomitant]
     Indication: DIABETES MELLITUS
     Dosage: FOR BLOOD SUGAR GREATER THAN 140, 2 HOURS POSTPRANDIAL
  7. HUMIRA [Suspect]
     Indication: PUSTULAR PSORIASIS
     Dates: start: 20110301, end: 20110401
  8. UNNAMED ANESTHETIC [Suspect]
     Indication: CATARACT OPERATION
     Dates: start: 20110323, end: 20110323
  9. CALCIUM [Concomitant]
     Indication: PRODUCT USED FOR UNKNOWN INDICATION
  10. HUMIRA [Suspect]
     Dates: start: 20110401

REACTIONS (5)
  - PUSTULAR PSORIASIS [None]
  - CATARACT [None]
  - BLISTER [None]
  - BLOOD BLISTER [None]
  - SKIN EXFOLIATION [None]
